FAERS Safety Report 7989798 (Version 2)
Quarter: 2013Q1

REPORT INFORMATION
  Report Type: Spontaneous
  Country: US (occurrence: None)
  Receive Date: 20110526
  Receipt Date: 20130116
  Transmission Date: 20140127
  Serious: Yes (Hospitalization)
  Sender: FDA-Public Use
  Company Number: 2011AP000994

PATIENT
  Age: 33 Year
  Sex: Female

DRUGS (3)
  1. LITHIUM CARBONATE [Suspect]
     Indication: PRODUCT USED FOR UNKNOWN INDICATION
  2. ESCITALOPRAM OXALATE [Suspect]
     Indication: PRODUCT USED FOR UNKNOWN INDICATION
  3. ALCOHOL [Suspect]
     Indication: PRODUCT USED FOR UNKNOWN INDICATION

REACTIONS (9)
  - Electrocardiogram QT prolonged [None]
  - Drug interaction [None]
  - Intentional overdose [None]
  - Suicide attempt [None]
  - Mental status changes [None]
  - Lethargy [None]
  - Aggression [None]
  - Sinus bradycardia [None]
  - Toxicity to various agents [None]
